FAERS Safety Report 7805516-3 (Version None)
Quarter: 2011Q4

REPORT INFORMATION
  Report Type: 
  Country: None (occurrence: None)
  Receive Date: 20111010
  Receipt Date: 20110805
  Transmission Date: 20120403
  Serious: Yes (Other)
  Sender: FDA-Public Use
  Company Number: US-ALLERGAN-1110604US

PATIENT
  Age: 42 Year
  Sex: Female

DRUGS (6)
  1. ASPIRIN [Concomitant]
     Dosage: 81 MG, QD
  2. MULTI-VITAMIN [Concomitant]
  3. BOTULINUM TOXIN TYPE A [Suspect]
     Indication: TORTICOLLIS
     Dosage: 300 UNITS, SINGLE
     Route: 030
     Dates: start: 20110627, end: 20110627
  4. BOTULINUM TOXIN TYPE A [Suspect]
     Dosage: UNK UNITS, SINGLE
     Route: 030
     Dates: start: 20100601, end: 20100601
  5. XANAX [Concomitant]
     Dosage: 1 MG, PRN
  6. FLUOXETINE [Concomitant]
     Dosage: 40 MG, QD

REACTIONS (5)
  - DIARRHOEA [None]
  - NAUSEA [None]
  - MALAISE [None]
  - HEADACHE [None]
  - VOMITING [None]
